FAERS Safety Report 9321723 (Version 1)
Quarter: 2013Q2

REPORT INFORMATION
  Report Type: Spontaneous
  Country: US (occurrence: US)
  Receive Date: 20130531
  Receipt Date: 20130531
  Transmission Date: 20140414
  Serious: Yes (Death)
  Sender: FDA-Public Use
  Company Number: US-CUBIST PHARMACEUTICALS, INC.-2013CBST000427

PATIENT
  Sex: 0

DRUGS (9)
  1. CUBICIN [Suspect]
     Indication: CHOLANGITIS ACUTE
     Dosage: UNK UNK, UNK
     Route: 065
  2. CUBICIN [Suspect]
     Indication: CLOSTRIDIUM BACTERAEMIA
  3. CUBICIN [Suspect]
     Indication: OFF LABEL USE
  4. MEROPENEM [Concomitant]
     Indication: CHOLANGITIS ACUTE
     Dosage: UNK UNK, UNK
     Route: 065
  5. MEROPENEM [Concomitant]
     Indication: CLOSTRIDIUM BACTERAEMIA
  6. TOBRAMYCIN [Concomitant]
     Indication: CHOLANGITIS ACUTE
     Dosage: UNK UNK, UNK
     Route: 065
  7. TOBRAMYCIN [Concomitant]
     Indication: CLOSTRIDIUM BACTERAEMIA
  8. METRONIDAZOLE [Concomitant]
     Indication: CHOLANGITIS ACUTE
     Dosage: UNK, UNK
     Route: 042
  9. METRONIDAZOLE [Concomitant]
     Indication: CLOSTRIDIUM BACTERAEMIA

REACTIONS (1)
  - Sepsis [Fatal]
